FAERS Safety Report 11152185 (Version 1)
Quarter: 2015Q2

REPORT INFORMATION
  Report Type: Spontaneous
  Country: US (occurrence: US)
  Receive Date: 20150601
  Receipt Date: 20150601
  Transmission Date: 20150821
  Serious: Yes (Other)
  Sender: FDA-Public Use
  Company Number: US-TEVA-565861USA

PATIENT
  Sex: Female

DRUGS (1)
  1. COPAXONE [Suspect]
     Active Substance: GLATIRAMER ACETATE
     Indication: MULTIPLE SCLEROSIS
     Dosage: FORM STRENGTH UNKNOWN
     Route: 065

REACTIONS (5)
  - Hypoaesthesia [Unknown]
  - Paraesthesia [Unknown]
  - Multiple sclerosis relapse [Unknown]
  - Optic neuritis [Unknown]
  - Muscular weakness [Unknown]

NARRATIVE: CASE EVENT DATE: 201501
